FAERS Safety Report 12894529 (Version 5)
Quarter: 2016Q4

REPORT INFORMATION
  Report Type: Report from Study
  Country: None (occurrence: CZ)
  Receive Date: 20161028
  Receipt Date: 20161228
  Transmission Date: 20170207
  Serious: Yes (Hospitalization)
  Sender: FDA-Public Use
  Company Number: CZ-ABBVIE-16P-217-1760668-00

PATIENT
  Age: 68 Year
  Sex: Male
  Weight: 78 kg

DRUGS (52)
  1. VENETOCLAX [Suspect]
     Active Substance: VENETOCLAX
     Indication: B-CELL LYMPHOMA
     Dosage: MOST RECENT DOSE(400 MG) PRIOR TO AE ONSET WAS ON 16-OCT-2016
     Route: 048
     Dates: start: 20161010
  2. CYCLOPHOSPHAMIDE. [Suspect]
     Active Substance: CYCLOPHOSPHAMIDE
     Indication: B-CELL LYMPHOMA
     Dosage: MOST RECENT DOSE (1470 MG )PRIOR TO AE ONSET WAS ON 08-OCT-2016 AT 1:15
     Route: 042
     Dates: start: 20161008
  3. FUROSEMIDUM [Concomitant]
     Active Substance: FUROSEMIDE
     Dates: start: 20161027, end: 20161030
  4. BISULEPIN HYDROCHLORIDE [Concomitant]
     Active Substance: BISULEPIN HYDROCHLORIDE
     Indication: PREMEDICATION
     Dates: start: 20161010, end: 20161010
  5. BISULEPIN HYDROCHLORIDE [Concomitant]
     Active Substance: BISULEPIN HYDROCHLORIDE
     Indication: INFUSION RELATED REACTION
     Dates: start: 20161027, end: 20161027
  6. BENZYDAMINE HYDROCHLORIDE [Concomitant]
     Active Substance: BENZYDAMINE HYDROCHLORIDE
     Indication: MUCOSAL INFLAMMATION
     Dates: start: 20161014, end: 20161026
  7. FILGRASTIM [Concomitant]
     Active Substance: FILGRASTIM
     Dates: start: 20161023, end: 20161023
  8. ALLOPURINOL. [Concomitant]
     Active Substance: ALLOPURINOL
     Indication: PROPHYLAXIS
     Dates: start: 20161004
  9. NORMAL SALINE [Concomitant]
     Active Substance: SODIUM CHLORIDE
     Indication: PROPHYLAXIS
     Dates: start: 20161004, end: 20161011
  10. SALBUTAMOLI SULFAS [Concomitant]
     Indication: ASTHMA
     Dates: start: 2010
  11. CEFTRIAXONE DISODIUM [Concomitant]
     Active Substance: CEFTRIAXONE
     Indication: INFECTION PROPHYLAXIS
     Dates: start: 20161007, end: 20161013
  12. CEFUROXIME AXETIL. [Concomitant]
     Active Substance: CEFUROXIME AXETIL
     Indication: INFECTION PROPHYLAXIS
     Dates: start: 20161014, end: 20161015
  13. FILGRASTIM [Concomitant]
     Active Substance: FILGRASTIM
     Indication: NEUTROPENIA
     Dates: start: 20161014, end: 20161023
  14. FILGRASTIM [Concomitant]
     Active Substance: FILGRASTIM
     Dates: start: 20161021, end: 20161022
  15. GLYCEROLUM [Concomitant]
     Indication: CONSTIPATION
     Dates: start: 20161022, end: 20161022
  16. METAMIZOLUM NATRICUM [Concomitant]
     Dates: start: 20161025, end: 20161025
  17. ALPRAZOLAMUM [Concomitant]
     Indication: PROPHYLAXIS
     Dates: start: 20161012, end: 20161012
  18. LATANOPROSTUM [Concomitant]
     Indication: GLAUCOMA
  19. NORMAL SALINE [Concomitant]
     Active Substance: SODIUM CHLORIDE
     Dates: start: 20161021, end: 20161029
  20. OMEPRAZOLUM [Concomitant]
     Indication: PROPHYLAXIS
     Dates: start: 20161004, end: 20161120
  21. FILGRASTIM [Concomitant]
     Active Substance: FILGRASTIM
     Indication: PROPHYLAXIS
     Dates: start: 20161013, end: 20161013
  22. LIDOCAINE/PEPPERMINT OIL/MAALOX [Concomitant]
     Indication: MUCOSAL INFLAMMATION
     Dates: start: 20161018, end: 20161022
  23. CALCIUM POLYSTYRENE SULFONATE [Concomitant]
     Active Substance: CALCIUM POLYSTYRENE SULFONATE
     Indication: PROPHYLAXIS
     Dates: start: 20161004, end: 20161006
  24. VALSARTAN/HYDROCHLOROTHIAZIDE AHCL [Concomitant]
     Indication: HYPERTENSION
     Dates: end: 20161004
  25. BUDESONIDUM [Concomitant]
     Active Substance: BUDESONIDE
     Indication: ASTHMA
  26. FUROSEMIDUM [Concomitant]
     Active Substance: FUROSEMIDE
     Dates: start: 20161023, end: 20161025
  27. HYDROCORTISONE. [Concomitant]
     Active Substance: HYDROCORTISONE
     Indication: INFUSION RELATED REACTION
     Dates: start: 20161027, end: 20161027
  28. THIETHYLPERAZINE MALEATE [Concomitant]
     Active Substance: THIETHYLPERAZINE MALEATE
     Indication: NAUSEA
     Dates: start: 20161018, end: 20161021
  29. RABEPRAZOLUM NATRICUM [Concomitant]
     Indication: PROPHYLAXIS
     Dates: start: 20161003
  30. LACTULOSE. [Concomitant]
     Active Substance: LACTULOSE
     Indication: PROPHYLAXIS
     Dates: start: 20161008, end: 20161008
  31. RITUXIMAB [Suspect]
     Active Substance: RITUXIMAB
     Indication: B-CELL LYMPHOMA
     Dosage: MOST RECENT DOSE(735 MG) PRIOR TO AE ONSET WAS ON 07-OCT-2016 AT 17:30
     Route: 042
     Dates: start: 20161007
  32. HYDROCORTISONE. [Concomitant]
     Active Substance: HYDROCORTISONE
     Indication: PREMEDICATION
     Dates: start: 20161010, end: 20161010
  33. METOCLOPRAMIDI HYDROCHLORIDUM [Concomitant]
     Indication: NAUSEA
     Dates: start: 20161004
  34. CEFEPIME HYDROCHLORIDE. [Concomitant]
     Active Substance: CEFEPIME HYDROCHLORIDE
     Indication: PROPHYLAXIS
     Dates: start: 20161005, end: 20161005
  35. SALBUTAMOLI SULFAS [Concomitant]
     Indication: COUGH
     Dates: start: 201612
  36. NADROPARINUM CALCICUM [Concomitant]
     Indication: THROMBOSIS PROPHYLAXIS
     Dates: start: 20161004, end: 20161013
  37. FUROSEMIDUM [Concomitant]
     Active Substance: FUROSEMIDE
     Indication: PROPHYLAXIS
     Dates: start: 20161006, end: 20161013
  38. PARACETAMOLUM [Concomitant]
     Active Substance: ACETAMINOPHEN
     Indication: PREMEDICATION
     Dates: start: 20161027, end: 20161027
  39. GRANISETRON [Concomitant]
     Active Substance: GRANISETRON
     Dates: start: 20161027, end: 20161027
  40. METHOTREXATUM [Concomitant]
     Indication: PROPHYLAXIS
     Dates: start: 20161027, end: 20161027
  41. AMLODIPINUM [Concomitant]
     Indication: HYPERTENSION
     Dates: start: 20161011, end: 20161013
  42. DOXORUBICIN [Suspect]
     Active Substance: DOXORUBICIN
     Indication: B-CELL LYMPHOMA
     Dosage: MOST RECENT DOSE(98 MG) PRIOR TO AE ONSET WAS ON 08-OCT-2016 AT 02:15
     Route: 042
     Dates: start: 20161008
  43. VINCRISTINE [Suspect]
     Active Substance: VINCRISTINE
     Indication: B-CELL LYMPHOMA
     Dosage: MOST RECENT DOSE(2 MG) PRIOR TO AE ONSET WAS ON 08-OCT-2016 AT 02:55
     Route: 042
     Dates: start: 20161008
  44. FORMOTEROLI FUMARATE DIHYDRIATE [Concomitant]
     Indication: ASTHMA
     Dates: start: 2010
  45. FILGRASTIM [Concomitant]
     Active Substance: FILGRASTIM
     Dates: start: 20161027, end: 20161030
  46. ZOLPIDEM TARTRATE. [Concomitant]
     Active Substance: ZOLPIDEM TARTRATE
     Indication: PROPHYLAXIS
     Dates: start: 20161023, end: 20161023
  47. PREDNISONE. [Suspect]
     Active Substance: PREDNISONE
     Indication: B-CELL LYMPHOMA
     Dosage: MOST RECENT DOSE (100 MG )PRIOR TO AE ONSET WAS ON 11-OCT-2016
     Route: 048
     Dates: start: 20161007
  48. KETOTIFEN FUMARATE. [Concomitant]
     Active Substance: KETOTIFEN FUMARATE
     Indication: ASTHMA
     Dates: start: 2010
  49. PREDNISONUM [Concomitant]
     Active Substance: PREDNISONE
     Indication: PREMEDICATION
     Dates: start: 20161005, end: 20161006
  50. PARACETAMOLUM [Concomitant]
     Active Substance: ACETAMINOPHEN
     Indication: PREMEDICATION
     Dates: start: 20161010, end: 20161010
  51. GRANISETRON [Concomitant]
     Active Substance: GRANISETRON
     Indication: PROPHYLAXIS OF NAUSEA AND VOMITING
     Dates: start: 20161011, end: 20161011
  52. METAMIZOLUM NATRICUM [Concomitant]
     Indication: PYREXIA
     Dates: start: 20161023

REACTIONS (1)
  - Cellulitis [Recovered/Resolved]

NARRATIVE: CASE EVENT DATE: 20161021
